FAERS Safety Report 7457923-9 (Version None)
Quarter: 2011Q2

REPORT INFORMATION
  Report Type: 
  Country: None (occurrence: None)
  Receive Date: 20110504
  Receipt Date: 20110421
  Transmission Date: 20111010
  Serious: Yes (Hospitalization, Other)
  Sender: FDA-Public Use
  Company Number: JP-PFIZER INC-2011095047

PATIENT
  Age: 78 Year
  Sex: Female

DRUGS (28)
  1. CANDESARTAN [Suspect]
     Dosage: 2 MG, 1X/DAY
     Route: 048
     Dates: start: 20110109, end: 20110218
  2. CANDESARTAN [Suspect]
     Dosage: 4 MG, 1X/DAY
     Route: 048
     Dates: start: 20110316
  3. GLIMEPIRIDE [Suspect]
     Dosage: 2 MG, 1X/DAY
     Route: 048
     Dates: start: 20080324, end: 20081201
  4. GLIMEPIRIDE [Suspect]
     Dosage: 1 MG, 1X/DAY
     Route: 048
     Dates: start: 20110219, end: 20110306
  5. ARTIST [Suspect]
     Dosage: 5 MG, 1X/DAY
     Route: 048
     Dates: start: 20110316
  6. GASMOTIN [Concomitant]
     Dosage: UNK
     Dates: start: 20110316
  7. AI-KENCHU-TO [Concomitant]
     Dosage: UNK
     Dates: start: 20110316
  8. NIKORANMART [Concomitant]
     Dosage: UNK
     Dates: start: 20110316
  9. MIGLITOL [Suspect]
     Indication: DIABETES MELLITUS
     Dosage: 50 MG, 3X/DAY
     Route: 048
     Dates: start: 20081108, end: 20110306
  10. LENDORMIN [Concomitant]
     Dosage: UNK
  11. HEPARIN [Concomitant]
     Dosage: UNK
     Dates: start: 20110308, end: 20110309
  12. ARTIST [Suspect]
     Dosage: 5 MG, 1X/DAY
     Route: 048
     Dates: start: 20110119, end: 20110306
  13. LIVALO [Suspect]
     Dosage: 1 MG, 1X/DAY
     Route: 048
     Dates: start: 20110316
  14. CELOOP KAYAKU [Concomitant]
     Dosage: UNK
  15. MITIGLINIDE [Concomitant]
     Dosage: UNK
     Dates: start: 20110118, end: 20110202
  16. ASCORBIC ACID [Concomitant]
     Dosage: UNK
  17. UBIRON [Concomitant]
     Dosage: UNK
     Dates: start: 20110316
  18. GLIMEPIRIDE [Suspect]
     Dosage: 3 MG, 1X/DAY
     Route: 048
     Dates: start: 20081201, end: 20110218
  19. LIVALO [Suspect]
     Dosage: 1 MG, 1X/DAY
     Route: 048
     Dates: start: 20110119, end: 20110306
  20. MAGNESIUM OXIDE [Concomitant]
     Dosage: UNK
  21. CANDESARTAN [Suspect]
     Dosage: 4 MG, 1X/DAY
     Route: 048
     Dates: start: 20110219, end: 20110306
  22. SIGMART [Concomitant]
     Dosage: UNK
  23. SOLDEM 3A [Concomitant]
     Dosage: UNK
     Dates: start: 20110307
  24. INSULIN 2 [Concomitant]
     Dosage: UNK
     Dates: start: 20110314
  25. CANDESARTAN [Suspect]
     Dosage: 8 MG, 1X/DAY
     Route: 048
     Dates: start: 20080324, end: 20110108
  26. PLAVIX [Concomitant]
     Dosage: UNK
  27. GASTER [Concomitant]
     Dosage: UNK
  28. ASPIRIN [Concomitant]
     Dosage: UNK

REACTIONS (2)
  - HEPATITIS C [None]
  - LIVER DISORDER [None]
